FAERS Safety Report 7419894-0 (Version None)
Quarter: 2011Q2

REPORT INFORMATION
  Report Type: 
  Country: None (occurrence: None)
  Receive Date: 20110418
  Receipt Date: 20110330
  Transmission Date: 20111010
  Serious: Yes (Hospitalization, Other)
  Sender: FDA-Public Use
  Company Number: US-BAYER-200934366NA

PATIENT
  Age: 61 Year
  Sex: Male

DRUGS (10)
  1. TRASYLOL [Suspect]
     Dosage: 50 ML, Q1HR
     Route: 042
     Dates: end: 20050526
  2. LEVOPHED [Concomitant]
     Dosage: UNK
     Route: 042
     Dates: start: 20050526, end: 20050526
  3. TRASYLOL [Suspect]
     Indication: AORTIC VALVE REPLACEMENT
     Dosage: 200 ML, UNK
     Route: 042
     Dates: start: 20050526
  4. ROCURONIUM [Concomitant]
     Dosage: 100 MG, UNK
     Route: 042
     Dates: start: 20050526, end: 20050526
  5. PRIMACOR [Concomitant]
     Dosage: UNK
     Route: 042
     Dates: start: 20050526, end: 20050526
  6. VERSED [Concomitant]
     Dosage: 5 MG, UNK
     Route: 042
     Dates: start: 20050526, end: 20050526
  7. FENTANYL [Concomitant]
     Dosage: UNK
     Route: 042
     Dates: start: 20050526, end: 20050526
  8. ZINACEF [Concomitant]
     Dosage: 3 G, UNK
     Route: 042
     Dates: start: 20050526, end: 20050526
  9. HEPARIN [Concomitant]
     Dosage: 41000 U, UNK
     Route: 042
     Dates: start: 20050526, end: 20050526
  10. MAGNESIUM SULFATE [Concomitant]
     Dosage: UNK
     Route: 042
     Dates: start: 20050526, end: 20050526

REACTIONS (12)
  - INJURY [None]
  - EMOTIONAL DISTRESS [None]
  - NERVOUSNESS [None]
  - ANXIETY [None]
  - MULTI-ORGAN FAILURE [None]
  - RENAL INJURY [None]
  - UNEVALUABLE EVENT [None]
  - RENAL FAILURE [None]
  - DEPRESSION [None]
  - FEAR [None]
  - PAIN [None]
  - ANHEDONIA [None]
